FAERS Safety Report 4939508-9 (Version None)
Quarter: 2006Q1

REPORT INFORMATION
  Report Type: 
  Country: None (occurrence: None)
  Receive Date: 20060306
  Receipt Date: 20060224
  Transmission Date: 20060701
  Serious: Yes (Hospitalization)
  Sender: FDA-Public Use
  Company Number: TCI2006A00401

PATIENT
  Age: 45 Year
  Sex: Female

DRUGS (2)
  1. LEUPROLIDE ACETATE [Suspect]
     Indication: ENDOMETRIOSIS
     Dosage: SEE IMAGE
     Route: 058
     Dates: start: 20050331, end: 20050331
  2. LEUPROLIDE ACETATE [Suspect]
     Indication: ENDOMETRIOSIS
     Dosage: SEE IMAGE
     Route: 058
     Dates: start: 20050617, end: 20051104

REACTIONS (11)
  - ASCITES [None]
  - BLOOD OESTROGEN INCREASED [None]
  - DEEP VEIN THROMBOSIS [None]
  - GENITAL HAEMORRHAGE [None]
  - INTESTINAL OBSTRUCTION [None]
  - INTESTINAL STENOSIS [None]
  - LIVER ABSCESS [None]
  - PERITONITIS [None]
  - POST PROCEDURAL COMPLICATION [None]
  - PURULENCE [None]
  - SMALL INTESTINAL PERFORATION [None]
